FAERS Safety Report 10882035 (Version 1)
Quarter: 2015Q1

REPORT INFORMATION
  Report Type: Spontaneous
  Country: US (occurrence: None)
  Receive Date: 20150226
  Receipt Date: 20150226
  Transmission Date: 20150721
  Serious: Yes (Hospitalization)
  Sender: FDA-Public Use
  Company Number: None

PATIENT
  Age: 36 Year
  Sex: Male
  Weight: 92.7 kg

DRUGS (4)
  1. CYCLOPHOSPHAMIDE. [Suspect]
     Active Substance: CYCLOPHOSPHAMIDE
     Dates: end: 20150106
  2. MERCAPTOPURINE. [Suspect]
     Active Substance: MERCAPTOPURINE
     Dates: end: 20150116
  3. METHOTREXATE [Suspect]
     Active Substance: METHOTREXATE
     Dates: end: 20141231
  4. CYTARABINE. [Suspect]
     Active Substance: CYTARABINE
     Dates: end: 20150116

REACTIONS (1)
  - Bacteraemia [None]

NARRATIVE: CASE EVENT DATE: 20150220
